FAERS Safety Report 9475842 (Version 4)
Quarter: 2013Q3

REPORT INFORMATION
  Report Type: Report from Study
  Country: DE (occurrence: DE)
  Receive Date: 20130826
  Receipt Date: 20130916
  Transmission Date: 20140515
  Serious: Yes (Hospitalization)
  Sender: FDA-Public Use
  Company Number: DE-ROCHE-1262933

PATIENT
  Sex: Female

DRUGS (9)
  1. RITUXIMAB [Suspect]
     Indication: B-CELL LYMPHOMA
     Dosage: D1.?MOST RECENT DOSE OF RITUXIMAB PRIOR TO SAE: 18/JUL/2013
     Route: 042
     Dates: start: 20130219
  2. CYCLOPHOSPHAMIDE [Suspect]
     Indication: B-CELL LYMPHOMA
     Dosage: D1?MOST RECENT DOSE OF CHCIP PRIOR TO SAE: 30/MAY/2013
     Route: 042
     Dates: start: 20130226
  3. DOXORUBICIN [Suspect]
     Indication: B-CELL LYMPHOMA
     Dosage: D1?ON 30/MAY/2013, THE LAST CYCLE FOR CHCIP WAS STARTED PRIOR TO SAE
     Route: 042
     Dates: start: 20130226
  4. PREDNISONE [Suspect]
     Indication: B-CELL LYMPHOMA
     Dosage: D1-5?ON 30/MAY/2013, THE LAST CYCLE FOR CHCIP WAS STARTED PRIOR TO SAE
     Route: 048
     Dates: start: 20130226
  5. PEGFILGRASTIM [Suspect]
     Indication: B-CELL LYMPHOMA
     Dosage: D4?ON 30/MAY/2013, THE LAST CYCLE FOR CHCIP WAS STARTED PRIOR TO SAE
     Route: 058
     Dates: start: 20130301
  6. LIPOSOMAL VINCRISTINE [Suspect]
     Indication: B-CELL LYMPHOMA
     Dosage: D1?ON 30/MAY/2013, THE LAST CYCLE FOR CHCIP WAS STARTED PRIOR TO SAE
     Route: 042
     Dates: start: 20130226
  7. VALSARTAN [Concomitant]
     Indication: HYPERTENSION
     Route: 048
  8. NALOXONE HYDROCHLORIDE/OXYCODONE HYDROCHLORIDE [Concomitant]
     Indication: PAIN
     Dosage: 20/10 MG 1X/D
     Route: 048
     Dates: start: 20130214
  9. CLEMASTIN [Concomitant]
     Indication: PROPHYLAXIS
     Route: 042
     Dates: start: 20130718

REACTIONS (1)
  - Spinal pain [Recovered/Resolved]
